FAERS Safety Report 5014643-8 (Version None)
Quarter: 2006Q2

REPORT INFORMATION
  Report Type: 
  Country: None (occurrence: None)
  Receive Date: 20060531
  Receipt Date: 20060510
  Transmission Date: 20061013
  Serious: Yes (Other)
  Sender: FDA-Public Use
  Company Number: PHEH2006US06169

PATIENT
  Age: 51 Year
  Sex: Female

DRUGS (6)
  1. TRILEPTAL [Suspect]
     Indication: DEPRESSION
     Dosage: UNK, QD
     Dates: start: 20051201, end: 20051201
  2. GEODON [Suspect]
     Dosage: UNK, UNK
     Dates: start: 20060301
  3. WELLBUTRIN XL [Suspect]
     Indication: DEPRESSION
     Dosage: 300 MG, QD
  4. NEURONTIN [Concomitant]
  5. WELLBUTRIN SR [Suspect]
     Indication: EATING DISORDER
  6. KLONOPIN [Suspect]
     Dates: end: 20060301

REACTIONS (6)
  - CONVULSION [None]
  - DYSKINESIA [None]
  - LOSS OF CONSCIOUSNESS [None]
  - MUSCLE DISORDER [None]
  - VISUAL DISTURBANCE [None]
  - VOMITING [None]
